FAERS Safety Report 9246246 (Version 1)
Quarter: 2013Q2

REPORT INFORMATION
  Report Type: Spontaneous
  Country: US (occurrence: US)
  Receive Date: 20130422
  Receipt Date: 20130422
  Transmission Date: 20140414
  Serious: Yes (Other)
  Sender: FDA-Public Use
  Company Number: US-ROCHE-1216704

PATIENT
  Age: 63 Year
  Sex: Female

DRUGS (1)
  1. KADCYLA [Suspect]
     Indication: BREAST CANCER METASTATIC
     Dosage: FIRST DOSE
     Route: 042
     Dates: start: 20130315

REACTIONS (6)
  - Blindness unilateral [Not Recovered/Not Resolved]
  - Vitreous detachment [Unknown]
  - Vitreous haemorrhage [Unknown]
  - Headache [Unknown]
  - Ataxia [Unknown]
  - Muscular weakness [Unknown]
